FAERS Safety Report 8251778-0 (Version None)
Quarter: 2012Q1

REPORT INFORMATION
  Report Type: 
  Country: None (occurrence: None)
  Receive Date: 20120321
  Receipt Date: 20100310
  Transmission Date: 20120608
  Serious: Yes (Other)
  Sender: FDA-Public Use
  Company Number: PHEH2010US02108

PATIENT
  Age: 57 Year
  Sex: Male
  Weight: 93 kg

DRUGS (8)
  1. CHLORTHALIDONE (CHLORTALIDONE) 12/21/2009 TO UNK [Concomitant]
  2. BETA BLOCKING AGENTS (NO INGREDIENTS/SUBSTANCES) [Concomitant]
  3. JANUMET (METFORMIN HYDROCHLORIDE, SITAGLIPTIN PHOSPHATE) 09/29/2009 TO [Concomitant]
  4. VITAMIN D3 (COLECALCIFEROL) 11/12/2009 TO ONGOING [Concomitant]
  5. VALTURNA [Suspect]
     Indication: HYPERTENSION
     Dosage: 300/320, ORAL
     Route: 048
     Dates: start: 20090929
  6. BYSTOLIC (NEBIVOLOL HYDROCHLORIDE) 11/10/2009 TO ONGOING [Concomitant]
  7. DIURETICS (NO INGREDIENTS/SUBSTANCES) [Concomitant]
  8. CHLOROTHIAZIDE (CHLOROTHIAZIDE) 12/21/2009 TO ONGOING [Concomitant]

REACTIONS (4)
  - BLOOD PRESSURE INADEQUATELY CONTROLLED [None]
  - BLOOD CREATININE INCREASED [None]
  - DRUG INEFFECTIVE [None]
  - BLOOD POTASSIUM INCREASED [None]
